FAERS Safety Report 4335631-0 (Version None)
Quarter: 2004Q2

REPORT INFORMATION
  Report Type: 
  Country: None (occurrence: None)
  Receive Date: 20040406
  Receipt Date: 20040331
  Transmission Date: 20050107
  Serious: Yes (Other)
  Sender: FDA-Public Use
  Company Number: US-GDP-0411022

PATIENT
  Sex: Male

DRUGS (1)
  1. METROGEL [Suspect]
     Indication: ROSACEA
     Dates: start: 19930101, end: 20030101

REACTIONS (3)
  - ERECTILE DYSFUNCTION [None]
  - NEUROPATHY PERIPHERAL [None]
  - RESTLESS LEGS SYNDROME [None]
